FAERS Safety Report 9786962 (Version 2)
Quarter: 2014Q1

REPORT INFORMATION
  Report Type: Report from Study
  Country: US (occurrence: US)
  Receive Date: 20131227
  Receipt Date: 20140113
  Transmission Date: 20141002
  Serious: Yes (Hospitalization)
  Sender: FDA-Public Use
  Company Number: US-EXELIXIS-XL18413003799

PATIENT
  Age: 61 Year
  Sex: Male
  Weight: 132.1 kg

DRUGS (13)
  1. XL184 [Suspect]
     Indication: PROSTATE CANCER
     Dosage: 40 MG, QD
     Route: 048
     Dates: start: 20130626, end: 20131220
  2. ABIRATERONE [Concomitant]
     Indication: PROSTATE CANCER
     Dosage: 1000 MG, QD
     Route: 048
     Dates: start: 20130626, end: 20131220
  3. ABIRATERONE [Concomitant]
     Dosage: 750 MG, QD
     Route: 048
     Dates: start: 20140101
  4. PREDNISONE [Concomitant]
     Indication: PROSTATE CANCER
     Dosage: 5 MG, BID
     Route: 048
     Dates: end: 20131220
  5. CALCIUM + VITAMIN D3 [Concomitant]
  6. FLOMAX [Concomitant]
  7. POTASSIUM CHLORIDE [Concomitant]
  8. LABETALOL [Concomitant]
  9. LISINOPRIL AND HYDROCHLOROTHIAZIDE [Concomitant]
  10. MULTIVITAMIN [Concomitant]
  11. NORVASC [Concomitant]
  12. VITAMIN C [Concomitant]
  13. WELLBUTRIN [Concomitant]

REACTIONS (1)
  - Atrial fibrillation [Unknown]
